FAERS Safety Report 13125127 (Version 1)
Quarter: 2017Q1

REPORT INFORMATION
  Report Type: Spontaneous
  Country: CA (occurrence: CA)
  Receive Date: 20170118
  Receipt Date: 20170118
  Transmission Date: 20170428
  Serious: Yes (Hospitalization)
  Sender: FDA-Public Use
  Company Number: CA-JUBILANT PHARMA LTD-2017CA000005

PATIENT
  Age: 29 Year
  Sex: Female

DRUGS (4)
  1. PROPANOLOL                         /00030001/ [Concomitant]
     Active Substance: PROPRANOLOL HYDROCHLORIDE
     Indication: BASEDOW^S DISEASE
     Dosage: 20 MG, 3 TIMES PER DAY
     Route: 048
     Dates: start: 201407, end: 201410
  2. NIFEDIPINE XL [Concomitant]
     Active Substance: NIFEDIPINE
     Indication: HYPERTENSION
     Dosage: 30 MG, ONCE PER DAY
     Route: 048
     Dates: start: 201410
  3. METOPROLOL. [Concomitant]
     Active Substance: METOPROLOL
     Indication: HYPERTHYROIDISM
     Dosage: 100 MG, ONCE PER DAY
     Route: 048
     Dates: start: 201410
  4. SODIUM IODIDE I-131 [Suspect]
     Active Substance: SODIUM IODIDE I-131
     Indication: BASEDOW^S DISEASE
     Dosage: 370 MBQ, SINGLE DOSE
     Route: 048
     Dates: start: 201408, end: 201408

REACTIONS (2)
  - Acute psychosis [Recovered/Resolved]
  - Myxoedema [Recovered/Resolved]

NARRATIVE: CASE EVENT DATE: 201411
